FAERS Safety Report 26131209 (Version 1)
Quarter: 2025Q4

REPORT INFORMATION
  Report Type: Spontaneous
  Country: US (occurrence: None)
  Receive Date: 20251207
  Receipt Date: 20251207
  Transmission Date: 20260118
  Serious: Yes (Other)
  Sender: FDA-CTU
  Company Number: None

PATIENT
  Age: 66 Year
  Sex: Female
  Weight: 79.65 kg

DRUGS (7)
  1. MOUNJARO [Suspect]
     Active Substance: TIRZEPATIDE
     Indication: Weight decreased
     Dosage: 1 INJECTION(S) 1X WEEKLY SUBCUTANEOUS
     Route: 058
     Dates: start: 20251029, end: 20251120
  2. irbesartan 225 mg daily [Concomitant]
  3. alendronate 70 mg 1x weekly [Concomitant]
  4. CALCIUM [Concomitant]
     Active Substance: CALCIUM
  5. VITAMIN D [Concomitant]
     Active Substance: VITAMIN D NOS
  6. VITAMINS [Concomitant]
     Active Substance: VITAMINS
  7. fish oil 1000 [Concomitant]

REACTIONS (4)
  - Diarrhoea [None]
  - Asthenia [None]
  - Dehydration [None]
  - Nausea [None]

NARRATIVE: CASE EVENT DATE: 20251125
